FAERS Safety Report 6676280-9 (Version None)
Quarter: 2010Q2

REPORT INFORMATION
  Report Type: 
  Country: None (occurrence: None)
  Receive Date: 20100412
  Receipt Date: 20100330
  Transmission Date: 20101027
  Serious: Yes (Disabling, Other)
  Sender: FDA-Public Use
  Company Number: GB-NOVOPROD-306456

PATIENT
  Age: 57 Year
  Sex: Female

DRUGS (2)
  1. VAGIFEM [Suspect]
     Indication: ATROPHIC VULVOVAGINITIS
     Dosage: 1 TAB, QD
     Route: 067
     Dates: start: 20100310, end: 20100312
  2. CITALOPRAM [Concomitant]
     Dosage: 20 MG, QD
     Dates: end: 20090901

REACTIONS (3)
  - DIARRHOEA [None]
  - HOT FLUSH [None]
  - MALAISE [None]
